FAERS Safety Report 6263848 (Version 3)
Quarter: 2013Q3

REPORT INFORMATION
  Report Type: Spontaneous
  Country: GB (occurrence: GB)
  Receive Date: 20070316
  Receipt Date: 20130822
  Transmission Date: 20140515
  Serious: Yes (Other)
  Sender: FDA-Public Use
  Company Number: GB-PFIZER INC-2007019005

PATIENT
  Sex: Female

DRUGS (6)
  1. SULFASALAZINE [Suspect]
     Indication: RHEUMATOID ARTHRITIS
     Dosage: 3000 MG DAILY
  2. MAXTREX [Suspect]
     Indication: RHEUMATOID ARTHRITIS
     Dosage: UNK
  3. PREDNISOLONE [Concomitant]
  4. FOLIC ACID [Concomitant]
  5. CALCIUM [Concomitant]
  6. ACTONEL [Concomitant]

REACTIONS (4)
  - Weight increased [Unknown]
  - Nausea [Unknown]
  - Oral pain [Unknown]
  - Mouth ulceration [Unknown]
